FAERS Safety Report 10249005 (Version 1)
Quarter: 2014Q2

REPORT INFORMATION
  Report Type: Spontaneous
  Country: US (occurrence: None)
  Receive Date: 20140619
  Receipt Date: 20140619
  Transmission Date: 20141212
  Serious: Yes (Other)
  Sender: FDA-Public Use
  Company Number: None

PATIENT
  Age: 8 Year
  Sex: Female
  Weight: 22.68 kg

DRUGS (1)
  1. LUPRON [Suspect]
     Indication: PRECOCIOUS PUBERTY
     Dosage: ONE SYRINGE EVERY THREE MONTHS INTO THE MUSCLE
     Route: 030
     Dates: start: 20140616, end: 20140616

REACTIONS (3)
  - Dizziness [None]
  - Fall [None]
  - Head injury [None]
